FAERS Safety Report 24360142 (Version 1)
Quarter: 2024Q3

REPORT INFORMATION
  Report Type: Spontaneous
  Country: US (occurrence: US)
  Receive Date: 20240925
  Receipt Date: 20240925
  Transmission Date: 20241017
  Serious: Yes (Other)
  Sender: AMGEN
  Company Number: US-AMGEN-USASP2024188078

PATIENT

DRUGS (15)
  1. RITUXIMAB [Suspect]
     Active Substance: RITUXIMAB
     Indication: Aplastic anaemia
     Dosage: 375 MILLIGRAM/SQ. METER, ON DAYS -13, -7, +1, AND +8.
     Route: 065
  2. RITUXIMAB [Suspect]
     Active Substance: RITUXIMAB
     Dosage: 200 MILLIGRAM/SQ. METER, ON DAY +5.
     Route: 065
  3. FLUDARABINE [Concomitant]
     Active Substance: FLUDARABINE PHOSPHATE
     Indication: Aplastic anaemia
     Dosage: 30 MILLIGRAM/SQ. METER, FOR FOUR DAYS (-7 TO -4, I.E., 7 TO 4 DAYS BEFORE TRANSPLANTATION)
     Route: 042
  4. FLUDARABINE [Concomitant]
     Active Substance: FLUDARABINE PHOSPHATE
     Dosage: 30 MILLIGRAM/SQ. METER, FOR FIVE DAYS (-6 TO -2)
     Route: 042
  5. CYCLOPHOSPHAMIDE [Concomitant]
     Active Substance: CYCLOPHOSPHAMIDE
     Indication: Aplastic anaemia
     Dosage: 750 MILLIGRAM/SQ. METER, FOR THREE DAYS (-6 TO -4)
     Route: 042
  6. CYCLOPHOSPHAMIDE [Concomitant]
     Active Substance: CYCLOPHOSPHAMIDE
     Dosage: 14.5 MILLIGRAM/KILOGRAM, FOR TWO DAYS (-6 TO -5).
     Route: 042
  7. CYCLOPHOSPHAMIDE [Concomitant]
     Active Substance: CYCLOPHOSPHAMIDE
     Dosage: 50 MILLIGRAM/KILOGRAM, ON DAYS +3 AND +4
     Route: 042
  8. LAPINE T-LYMPHOCYTE IMMUNE GLOBULIN [Concomitant]
     Active Substance: LAPINE T-LYMPHOCYTE IMMUNE GLOBULIN
     Dosage: 3.75 MILLIGRAM/KILOGRAM, FOR TWO DAYS (-2 AND -1).
  9. TACROLIMUS [Concomitant]
     Active Substance: TACROLIMUS
     Dosage: DAY -3
  10. TACROLIMUS [Concomitant]
     Active Substance: TACROLIMUS
     Dosage: STARTING ON DAY +5
  11. TACROLIMUS [Concomitant]
     Active Substance: TACROLIMUS
     Dosage: ADJUSTED TO A GOAL RANGE OF 5-15 NG/ML, FOR 180 DAYS
  12. TACROLIMUS [Concomitant]
     Active Substance: TACROLIMUS
     Dosage: TAPER
  13. METHOTREXATE [Concomitant]
     Active Substance: METHOTREXATE
     Dosage: 5 MILLIGRAM/SQ. METER, ON DAYS +1, +3, AND +6
     Route: 042
  14. MYCOPHENOLATE MOFETIL [Concomitant]
     Active Substance: MYCOPHENOLATE MOFETIL
     Dosage: STARTING ON DAY +5
  15. MYCOPHENOLATE MOFETIL [Concomitant]
     Active Substance: MYCOPHENOLATE MOFETIL
     Dosage: ADMINISTERED UNTIL DAY +35

REACTIONS (11)
  - Acute graft versus host disease in skin [Unknown]
  - Acute graft versus host disease in intestine [Unknown]
  - Acute graft versus host disease in liver [Unknown]
  - Chronic graft versus host disease oral [Unknown]
  - Chronic graft versus host disease in skin [Unknown]
  - Chronic graft versus host disease in eye [Unknown]
  - Graft versus host disease in gastrointestinal tract [Unknown]
  - Graft versus host disease in liver [Unknown]
  - Epstein-Barr virus infection reactivation [Recovered/Resolved]
  - Off label use [Unknown]
  - Cytomegalovirus infection [Unknown]
